FAERS Safety Report 8590673-4 (Version None)
Quarter: 2012Q3

REPORT INFORMATION
  Report Type: 
  Country: None (occurrence: None)
  Receive Date: 20120731
  Receipt Date: 20120405
  Transmission Date: 20120928
  Serious: Yes (Other)
  Sender: FDA-Public Use
  Company Number: 2012070133

PATIENT
  Age: 55 Year
  Sex: Female

DRUGS (5)
  1. CESAMET [Suspect]
     Dosage: (0.25 MG), ORAL
     Route: 048
  2. BUPRENORPHINE [Suspect]
     Dosage: 240 MCG(10MCG,1 IN 1 HR),360 MCG(15MCG,1 IN 1 HR),480 MCG (20MCG,1 IN 1 HR),120 MCG (5 MCG,1 IN 1 HR
     Route: 062
  3. ESCITALOPRAM OXALATE [Suspect]
     Dosage: 20 MG (20 MG, 1 IN 1 D),ORAL
     Route: 048
  4. BACLOFEN [Suspect]
     Dosage: 60 MG (20 MG,3 IN 1 D)
  5. CLONAZEPAM [Suspect]
     Dosage: 3 MG (1 MG,3 IN 1 D), ORAL
     Route: 048

REACTIONS (20)
  - MUSCLE SPASMS [None]
  - PALPITATIONS [None]
  - VOMITING [None]
  - DRUG INTERACTION [None]
  - PULSE PRESSURE INCREASED [None]
  - HALLUCINATION [None]
  - DISORIENTATION [None]
  - HEADACHE [None]
  - GAIT DISTURBANCE [None]
  - URINARY TRACT INFECTION [None]
  - DIZZINESS [None]
  - SOMNOLENCE [None]
  - EUPHORIC MOOD [None]
  - HYPOPNOEA [None]
  - DYSPNOEA [None]
  - DIARRHOEA [None]
  - BALANCE DISORDER [None]
  - DISTURBANCE IN ATTENTION [None]
  - ANXIETY [None]
  - ASTHENIA [None]
